FAERS Safety Report 8126125-5 (Version None)
Quarter: 2012Q1

REPORT INFORMATION
  Report Type: 
  Country: None (occurrence: None)
  Receive Date: 20120209
  Receipt Date: 20120201
  Transmission Date: 20120608
  Serious: Yes (Other)
  Sender: FDA-Public Use
  Company Number: PHHY2010JP20524

PATIENT
  Sex: Male
  Weight: 50 kg

DRUGS (7)
  1. MERCKMEZIN [Concomitant]
     Dosage: 6 G, UNK
     Route: 048
     Dates: start: 20080702
  2. TORSEMIDE [Concomitant]
     Dosage: 8 MG, UNK
     Route: 048
  3. VALSARTAN [Suspect]
     Indication: HYPERTENSION
     Dosage: 160 MG, QD
     Route: 048
     Dates: start: 20070803
  4. TAMSULOSIN HCL [Concomitant]
     Dosage: 0.2 MG, UNK
     Route: 048
     Dates: start: 20070604
  5. TORSEMIDE [Concomitant]
     Indication: HYPERTENSION
     Dosage: 4 MG, UNK
     Route: 048
     Dates: start: 20070604
  6. CANDESARTAN CILEXETIL [Concomitant]
     Indication: HYPERTENSION
     Dosage: 8 MG, UNK
     Route: 048
     Dates: start: 20070604, end: 20070802
  7. NATEGLINIDE [Concomitant]
     Dosage: 270 MG, UNK
     Route: 048
     Dates: start: 20070604

REACTIONS (8)
  - DIABETIC NEPHROPATHY [None]
  - HYPERURICAEMIA [None]
  - HYPERKALAEMIA [None]
  - HYPERGLYCAEMIA [None]
  - GLUCOSE URINE PRESENT [None]
  - BLOOD UREA INCREASED [None]
  - CONCOMITANT DISEASE AGGRAVATED [None]
  - OEDEMA [None]
